FAERS Safety Report 12411206 (Version 1)
Quarter: 2016Q2

REPORT INFORMATION
  Report Type: Spontaneous
  Country: ZA (occurrence: ZA)
  Receive Date: 20160527
  Receipt Date: 20160527
  Transmission Date: 20160815
  Serious: Yes (Other)
  Sender: FDA-Public Use
  Company Number: ZA-009507513-1605ZAF010817

PATIENT
  Age: 21 Year
  Sex: Female

DRUGS (1)
  1. IMPLANON [Suspect]
     Active Substance: ETONOGESTREL
     Indication: CONTRACEPTION
     Dosage: ONE ROD FOR 3 YEARS
     Route: 058

REACTIONS (2)
  - Weight increased [Not Recovered/Not Resolved]
  - Benign intracranial hypertension [Recovered/Resolved]
